FAERS Safety Report 10365588 (Version 2)
Quarter: 2014Q3

REPORT INFORMATION
  Report Type: Spontaneous
  Country: IT (occurrence: None)
  Receive Date: 20140804
  Receipt Date: 20140908
  Transmission Date: 20150326
  Serious: Yes (Hospitalization)
  Sender: FDA-Public Use
  Company Number: 2014AP003767

PATIENT
  Age: 58 Year
  Sex: Male

DRUGS (4)
  1. URSACOL (URSODEOXYCHOLIC ACID) [Concomitant]
  2. URSODEOXYCHOLIC ACID (URSODEOXYCHOLIC ACID) [Concomitant]
  3. PANTOPRAZOLE [Suspect]
     Active Substance: PANTOPRAZOLE SODIUM
     Indication: PRODUCT USED FOR UNKNOWN INDICATION
     Route: 048
     Dates: start: 20140423, end: 20140508
  4. COUMADIN [Suspect]
     Active Substance: WARFARIN SODIUM
     Indication: PRODUCT USED FOR UNKNOWN INDICATION
     Dosage: 1 UNK
     Route: 048
     Dates: start: 20140328, end: 20140508

REACTIONS (3)
  - International normalised ratio increased [None]
  - Drug interaction [None]
  - Anaemia [None]

NARRATIVE: CASE EVENT DATE: 20140508
